FAERS Safety Report 7895127 (Version 6)
Quarter: 2013Q3

REPORT INFORMATION
  Report Type: Report from Study
  Country: ZA (occurrence: ZA)
  Receive Date: 20110412
  Receipt Date: 20130719
  Transmission Date: 20140515
  Serious: Yes (Other)
  Sender: FDA-Public Use
  Company Number: ZA-BRISTOL-MYERS SQUIBB COMPANY-15651763

PATIENT
  Age: 43 Year
  Sex: Male

DRUGS (12)
  1. METFORMIN HCL [Suspect]
     Indication: TYPE 2 DIABETES MELLITUS
  2. GLICLAZIDE [Suspect]
     Indication: TYPE 2 DIABETES MELLITUS
  3. PLACEBO [Suspect]
     Indication: TYPE 2 DIABETES MELLITUS
     Dates: start: 20101209
  4. ASPIRIN [Concomitant]
  5. VITAMIN B COMPLEX [Concomitant]
     Indication: DIABETIC NEUROPATHY
     Route: 048
  6. PARACETAMOL [Concomitant]
     Route: 048
  7. ALLOPURINOL [Concomitant]
     Indication: GOUT
     Route: 048
  8. AMITRIPTYLINE [Concomitant]
     Indication: DIABETIC NEUROPATHY
     Route: 048
  9. PYRIDOXINE [Concomitant]
     Indication: DIABETIC NEUROPATHY
     Route: 048
  10. STREPTOMYCIN [Concomitant]
     Route: 030
     Dates: start: 20110105, end: 20110215
  11. RIFAFOUR [Concomitant]
     Dosage: 1DF= 1UNIT
     Route: 048
     Dates: start: 20110105, end: 20110801
  12. TREPILINE [Concomitant]

REACTIONS (1)
  - Pulmonary tuberculosis [Recovered/Resolved]
